FAERS Safety Report 24215357 (Version 3)
Quarter: 2024Q3

REPORT INFORMATION
  Report Type: Spontaneous
  Country: US (occurrence: US)
  Receive Date: 20240816
  Receipt Date: 20240930
  Transmission Date: 20241016
  Serious: No
  Sender: NOVARTIS
  Company Number: US-002147023-NVSC2024US165560

PATIENT

DRUGS (1)
  1. COSENTYX [Suspect]
     Active Substance: SECUKINUMAB
     Indication: Product used for unknown indication
     Dosage: 300 MG, LOADING DOSE WEEKS 0,1,2,3,4,  EVERY OTHER WEEK FOR LOADING
     Route: 058

REACTIONS (2)
  - Feeling abnormal [Unknown]
  - Dizziness [Unknown]
